FAERS Safety Report 23153756 (Version 4)
Quarter: 2023Q4

REPORT INFORMATION
  Report Type: Spontaneous
  Country: US (occurrence: US)
  Receive Date: 20231107
  Receipt Date: 20231218
  Transmission Date: 20240109
  Serious: No
  Sender: FDA-Public Use
  Company Number: US-PFIZER INC-PV202300172619

PATIENT
  Age: 15 Year
  Sex: Male

DRUGS (1)
  1. GENOTROPIN [Suspect]
     Active Substance: SOMATROPIN
     Dosage: 2.6 MG

REACTIONS (6)
  - Device delivery system issue [Unknown]
  - Needle issue [Unknown]
  - Drug dose omission by device [Unknown]
  - Device use issue [Unknown]
  - Injury associated with device [Unknown]
  - Injection site pain [Unknown]
